FAERS Safety Report 8875832 (Version 2)
Quarter: 2012Q4

REPORT INFORMATION
  Report Type: 
  Country: JP (occurrence: JP)
  Receive Date: 20121030
  Receipt Date: 20121106
  Transmission Date: 20130627
  Serious: Yes (Hospitalization)
  Sender: FDA-Public Use
  Company Number: JP-GLAXOSMITHKLINE-B0837966A

PATIENT
  Age: 77 Year
  Sex: Female

DRUGS (3)
  1. VALTREX [Suspect]
     Indication: HERPES ZOSTER
     Dosage: 1000MG Three times per day
     Route: 048
     Dates: start: 20121002, end: 20121003
  2. LOXOPROFEN [Concomitant]
     Indication: PAIN
     Route: 048
     Dates: start: 20121002, end: 20121003
  3. ARASENA-A [Concomitant]
     Route: 061
     Dates: start: 20121002

REACTIONS (4)
  - Renal failure acute [Recovered/Resolved]
  - Rash [Unknown]
  - Pyrexia [Unknown]
  - Blood creatinine increased [Unknown]
